FAERS Safety Report 13784848 (Version 1)
Quarter: 2017Q3

REPORT INFORMATION
  Report Type: Spontaneous
  Country: US (occurrence: US)
  Receive Date: 20170725
  Receipt Date: 20170725
  Transmission Date: 20171127
  Serious: No
  Sender: FDA-Public Use
  Company Number: US-UNITED THERAPEUTICS-UNT-2017-003682

PATIENT
  Age: 70 Year
  Sex: Female
  Weight: 76.19 kg

DRUGS (1)
  1. ORENITRAM [Suspect]
     Active Substance: TREPROSTINIL
     Indication: PULMONARY ARTERIAL HYPERTENSION
     Dosage: 0.25 MG, TID
     Route: 048
     Dates: start: 20170228

REACTIONS (4)
  - Productive cough [Unknown]
  - Nausea [Unknown]
  - Flushing [Unknown]
  - Decreased appetite [Unknown]

NARRATIVE: CASE EVENT DATE: 201703
